FAERS Safety Report 6026402-8 (Version None)
Quarter: 2009Q1

REPORT INFORMATION
  Report Type: 
  Country: None (occurrence: None)
  Receive Date: 20090102
  Receipt Date: 20081226
  Transmission Date: 20090719
  Serious: Yes (Death, Other)
  Sender: FDA-Public Use
  Company Number: US-PURDUE-USA_2008_0036383

PATIENT
  Age: 22 Year
  Sex: Female
  Weight: 70 kg

DRUGS (3)
  1. DILAUDID-HP [Suspect]
     Indication: PAIN
     Dosage: 5 MG/ML, SEE TEXT
     Route: 042
     Dates: start: 20081022, end: 20081022
  2. OXYCODONE HCL [Concomitant]
     Indication: PAIN
     Dosage: UNK, PRN
  3. FOLIC ACID [Concomitant]
     Indication: SICKLE CELL ANAEMIA

REACTIONS (2)
  - DRUG ADMINISTRATION ERROR [None]
  - UNRESPONSIVE TO STIMULI [None]
